FAERS Safety Report 9224693 (Version 1)
Quarter: 2013Q2

REPORT INFORMATION
  Report Type: Spontaneous
  Country: IT (occurrence: IT)
  Receive Date: 20130411
  Receipt Date: 20130411
  Transmission Date: 20140414
  Serious: Yes (Hospitalization)
  Sender: FDA-Public Use
  Company Number: IT-PFIZER INC-2013114272

PATIENT
  Age: 86 Year
  Sex: Female

DRUGS (4)
  1. TORVAST [Suspect]
     Indication: HYPERCHOLESTEROLAEMIA
     Dosage: 40 MG, 1X/DAY
     Route: 048
     Dates: start: 20120305, end: 20120507
  2. DILATREND [Concomitant]
  3. DUOPLAVIN [Concomitant]
  4. EUTIROX [Concomitant]

REACTIONS (1)
  - Gamma-glutamyltransferase increased [Unknown]
